FAERS Safety Report 9227445 (Version 2)
Quarter: 2013Q2

REPORT INFORMATION
  Report Type: Spontaneous
  Country: IT (occurrence: IT)
  Receive Date: 20130412
  Receipt Date: 20130508
  Transmission Date: 20140414
  Serious: Yes (Life-Threatening, Hospitalization)
  Sender: FDA-Public Use
  Company Number: IT-009507513-1304ITA002118

PATIENT
  Age: 40 Year
  Sex: Female

DRUGS (2)
  1. ESMERON [Suspect]
     Indication: MUSCLE RELAXANT THERAPY
     Dosage: UNK
     Route: 042
     Dates: start: 20130329, end: 20130329
  2. PROPOFOL FRESENIUS KABI [Interacting]
     Indication: INDUCTION OF ANAESTHESIA
     Dosage: UNK
     Route: 042
     Dates: start: 20130329, end: 20130329

REACTIONS (2)
  - Bronchospasm [Recovered/Resolved]
  - Drug interaction [Recovered/Resolved]
